FAERS Safety Report 7333667-9 (Version None)
Quarter: 2011Q1

REPORT INFORMATION
  Report Type: 
  Country: None (occurrence: None)
  Receive Date: 20110306
  Receipt Date: 20110223
  Transmission Date: 20110831
  Serious: Yes (Hospitalization, Other)
  Sender: FDA-Public Use
  Company Number: US-ELI_LILLY_AND_COMPANY-US201101003495

PATIENT
  Sex: Female

DRUGS (4)
  1. TOPROL-XL [Concomitant]
  2. SYNTHROID [Concomitant]
  3. FORTEO [Suspect]
     Dosage: 20 UG, DAILY (1/D)
     Dates: start: 20100801
  4. POTASSIUM [Concomitant]

REACTIONS (1)
  - ARTHROPATHY [None]
